FAERS Safety Report 8697357 (Version 2)
Quarter: 2012Q4

REPORT INFORMATION
  Report Type: 
  Country: US (occurrence: US)
  Receive Date: 20120801
  Receipt Date: 20120907
  Transmission Date: 20130627
  Serious: Yes (Other)
  Sender: FDA-Public Use
  Company Number: US-BRISTOL-MYERS SQUIBB COMPANY-16798795

PATIENT
  Age: 49 Year
  Sex: Female

DRUGS (10)
  1. ORENCIA [Suspect]
     Indication: RHEUMATOID ARTHRITIS
     Dosage: 1DF:1 vial,Last inf was 6-7 weeks ago,5Jun12,intrp on 5Jul12,last inf on 26Jul12
     Route: 042
     Dates: start: 201005
  2. NORFLEX [Concomitant]
     Indication: PAIN MANAGEMENT
  3. METHOTREXATE TABS [Concomitant]
     Dosage: no refills since Jul-2012
     Dates: start: 20100825
  4. PLAQUENIL [Concomitant]
     Indication: RHEUMATOID ARTHRITIS
     Dosage: last prescribed 06-Spe-2011
     Dates: start: 20100610
  5. PREDNISONE [Concomitant]
     Indication: RHEUMATOID ARTHRITIS
     Dates: start: 20100713
  6. DURAGESIC PATCH [Concomitant]
     Indication: PAIN
     Dosage: Q3days prn
  7. KLONOPIN [Concomitant]
     Indication: PAIN
  8. NUVIGIL [Concomitant]
     Indication: SLEEP DISORDER
  9. TREXIMET [Concomitant]
  10. CYMBALTA [Concomitant]

REACTIONS (2)
  - Arthropathy [Unknown]
  - Bone disorder [Unknown]
